FAERS Safety Report 23326040 (Version 2)
Quarter: 2025Q2

REPORT INFORMATION
  Report Type: Report from Study
  Country: US (occurrence: US)
  Receive Date: 20231221
  Receipt Date: 20250429
  Transmission Date: 20250716
  Serious: Yes (Other)
  Sender: ABBVIE
  Company Number: US-ABBVIE-5550632

PATIENT
  Age: 43 Year
  Sex: Male

DRUGS (12)
  1. SKYRIZI [Suspect]
     Active Substance: RISANKIZUMAB-RZAA
     Indication: Crohn^s disease
     Route: 058
     Dates: start: 20230802
  2. VITAMIN D [Concomitant]
     Active Substance: VITAMIN D NOS
     Indication: Product used for unknown indication
  3. UBRELVY [Concomitant]
     Active Substance: UBROGEPANT
     Indication: Product used for unknown indication
  4. UCERIS [Concomitant]
     Active Substance: BUDESONIDE
     Indication: Product used for unknown indication
  5. SPIRONOLACTONE [Concomitant]
     Active Substance: SPIRONOLACTONE
     Indication: Product used for unknown indication
  6. TRAMADOL [Concomitant]
     Active Substance: TRAMADOL
     Indication: Product used for unknown indication
  7. FLONASE [Concomitant]
     Active Substance: FLUTICASONE PROPIONATE
     Indication: Product used for unknown indication
  8. POTASSIUM [Concomitant]
     Active Substance: POTASSIUM
     Indication: Product used for unknown indication
  9. BOTOX [Concomitant]
     Active Substance: ONABOTULINUMTOXINA
     Indication: Product used for unknown indication
  10. ALBUTEROL [Concomitant]
     Active Substance: ALBUTEROL
     Indication: Product used for unknown indication
  11. DOXEPIN [Concomitant]
     Active Substance: DOXEPIN
     Indication: Product used for unknown indication
  12. ESTRADIOL [Concomitant]
     Active Substance: ESTRADIOL
     Indication: Product used for unknown indication

REACTIONS (14)
  - Skin laceration [Unknown]
  - Loss of consciousness [Unknown]
  - Scratch [Unknown]
  - Bleeding time prolonged [Unknown]
  - Impaired healing [Unknown]
  - Abdominal pain [Not Recovered/Not Resolved]
  - Gastrointestinal obstruction [Not Recovered/Not Resolved]
  - Wound complication [Unknown]
  - Bowel movement irregularity [Unknown]
  - Presyncope [Unknown]
  - Inflammation of wound [Unknown]
  - Gastrointestinal disorder [Unknown]
  - Asthenia [Unknown]
  - Lethargy [Unknown]

NARRATIVE: CASE EVENT DATE: 20230101
